FAERS Safety Report 5112798-8 (Version None)
Quarter: 2006Q3

REPORT INFORMATION
  Report Type: 
  Country: None (occurrence: None)
  Receive Date: 20060922
  Receipt Date: 20060913
  Transmission Date: 20061208
  Serious: Yes (Hospitalization)
  Sender: FDA-Public Use
  Company Number: 2006AP04305

PATIENT
  Age: 57 Year
  Sex: Male

DRUGS (3)
  1. IRESSA [Suspect]
     Indication: LUNG ADENOCARCINOMA STAGE IV
     Route: 048
     Dates: start: 20050101, end: 20050101
  2. PACLITAXEL [Suspect]
     Indication: LUNG ADENOCARCINOMA STAGE IV
     Dosage: 4 COURSES GIVEN
     Dates: start: 20041101, end: 20050201
  3. IRINOTECAN HYDROCHLORIDE [Suspect]
     Indication: LUNG ADENOCARCINOMA STAGE IV
     Dosage: 4 COURSES  GIVEN
     Dates: start: 20041101, end: 20050201

REACTIONS (1)
  - GLOMERULONEPHRITIS MEMBRANOUS [None]
